FAERS Safety Report 5456879-8 (Version None)
Quarter: 2007Q3

REPORT INFORMATION
  Report Type: 
  Country: None (occurrence: None)
  Receive Date: 20070918
  Receipt Date: 20070430
  Transmission Date: 20080115
  Serious: Yes (Hospitalization)
  Sender: FDA-Public Use
  Company Number: US-ASTRAZENECA-2006UW26575

PATIENT
  Age: 772 Month
  Sex: Male
  Weight: 72.3 kg

DRUGS (7)
  1. SEROQUEL [Suspect]
     Indication: DEPRESSION
     Route: 048
     Dates: start: 20050909, end: 20051013
  2. SEROQUEL [Suspect]
     Indication: ANXIETY
     Route: 048
     Dates: start: 20050909, end: 20051013
  3. SEROQUEL [Suspect]
     Indication: BIPOLAR DISORDER
     Route: 048
     Dates: start: 20050909, end: 20051013
  4. SEROQUEL [Suspect]
     Route: 048
     Dates: start: 20051015, end: 20051130
  5. SEROQUEL [Suspect]
     Route: 048
     Dates: start: 20051015, end: 20051130
  6. SEROQUEL [Suspect]
     Route: 048
     Dates: start: 20051015, end: 20051130
  7. RISPERDAL [Concomitant]
     Dates: start: 20050701, end: 20051001

REACTIONS (3)
  - DEPRESSION [None]
  - DISORIENTATION [None]
  - HYPERGLYCAEMIA [None]
